FAERS Safety Report 22390202 (Version 1)
Quarter: 2023Q2

REPORT INFORMATION
  Report Type: Report from Study
  Country: US (occurrence: US)
  Receive Date: 20230531
  Receipt Date: 20230531
  Transmission Date: 20230721
  Serious: Yes (Other)
  Sender: FDA-Public Use
  Company Number: US-002147023-NVSC2023US122280

PATIENT
  Sex: Female

DRUGS (9)
  1. CLOBETASOL [Suspect]
     Active Substance: CLOBETASOL
     Indication: Psoriatic arthropathy
     Dosage: UNK
     Route: 065
  2. DESONIDE [Suspect]
     Active Substance: DESONIDE
     Indication: Psoriatic arthropathy
     Dosage: UNK
     Route: 065
  3. METHOTREXATE [Suspect]
     Active Substance: METHOTREXATE
     Indication: Psoriatic arthropathy
     Dosage: UNK
     Route: 065
  4. TEMOVATE [Suspect]
     Active Substance: CLOBETASOL PROPIONATE
     Indication: Psoriatic arthropathy
     Dosage: UNK
     Route: 065
  5. ENBREL [Suspect]
     Active Substance: ETANERCEPT
     Indication: Psoriatic arthropathy
     Dosage: UNK
     Route: 065
  6. ENBREL [Suspect]
     Active Substance: ETANERCEPT
     Dosage: UNK
     Route: 065
  7. HUMIRA [Suspect]
     Active Substance: ADALIMUMAB
     Indication: Psoriatic arthropathy
     Dosage: UNK
     Route: 065
  8. TRIAMCINOLONE ACETONIDE [Suspect]
     Active Substance: TRIAMCINOLONE ACETONIDE
     Indication: Psoriatic arthropathy
     Dosage: UNK
     Route: 065
  9. OLUX [Suspect]
     Active Substance: CLOBETASOL PROPIONATE
     Indication: Psoriatic arthropathy
     Dosage: UNK
     Route: 065

REACTIONS (8)
  - Psoriatic arthropathy [Unknown]
  - Arthralgia [Not Recovered/Not Resolved]
  - Psoriasis [Unknown]
  - Skin plaque [Unknown]
  - Erythema [Unknown]
  - Papule [Unknown]
  - Product dose omission issue [Unknown]
  - Treatment failure [Unknown]
